FAERS Safety Report 4775894-0 (Version None)
Quarter: 2005Q3

REPORT INFORMATION
  Report Type: 
  Country: None (occurrence: None)
  Receive Date: 20050914
  Receipt Date: 20050328
  Transmission Date: 20060218
  Serious: Yes (Death, Hospitalization)
  Sender: FDA-Public Use
  Company Number: 163-20785-05030727 (0)

PATIENT
  Age: 44 Year
  Sex: Female

DRUGS (4)
  1. THALOMID [Suspect]
     Indication: GLIOBLASTOMA MULTIFORME
     Dosage: 200-400MG, QD, ORAL
     Route: 048
     Dates: start: 20040701, end: 20040826
  2. THALOMID [Suspect]
     Indication: GLIOBLASTOMA MULTIFORME
     Dosage: 200-400MG, QD, ORAL
     Route: 048
     Dates: start: 20040830, end: 20040927
  3. PROCARBAZINE (PROCARBAZINE) (UNKNOWN) [Suspect]
     Indication: GLIOBLASTOMA MULTIFORME
     Dosage: 250MG/M2 X 5 DAYS Q 28 DAYS
     Dates: start: 20040701, end: 20040826
  4. PROCARBAZINE (PROCARBAZINE) (UNKNOWN) [Suspect]
     Indication: GLIOBLASTOMA MULTIFORME
     Dosage: 250MG/M2 X 5 DAYS Q 28 DAYS
     Dates: start: 20040901, end: 20040927

REACTIONS (7)
  - ASTHENIA [None]
  - CONSTIPATION [None]
  - COUGH [None]
  - DEATH [None]
  - DISEASE PROGRESSION [None]
  - PARAESTHESIA [None]
  - VISUAL ACUITY REDUCED [None]
